FAERS Safety Report 24711724 (Version 1)
Quarter: 2024Q4

REPORT INFORMATION
  Report Type: Spontaneous
  Country: US (occurrence: US)
  Receive Date: 20241209
  Receipt Date: 20241209
  Transmission Date: 20250114
  Serious: No
  Sender: SPRINGWORKS THERAPEUTIC
  Company Number: US-SPRINGWORKS THERAPEUTICS-SW-002022

PATIENT
  Age: 19 Year
  Sex: Female

DRUGS (1)
  1. OGSIVEO [Suspect]
     Active Substance: NIROGACESTAT HYDROBROMIDE
     Indication: Product used for unknown indication

REACTIONS (2)
  - Rash [Recovering/Resolving]
  - Diarrhoea [Recovering/Resolving]
